FAERS Safety Report 22377898 (Version 1)
Quarter: 2023Q2

REPORT INFORMATION
  Report Type: Spontaneous
  Country: CN (occurrence: None)
  Receive Date: 20230529
  Receipt Date: 20230529
  Transmission Date: 20230722
  Serious: No
  Sender: FDA-Public Use
  Company Number: CN-ROCHE-3357165

PATIENT

DRUGS (4)
  1. HEMLIBRA [Suspect]
     Active Substance: EMICIZUMAB-KXWH
     Indication: Factor VIII deficiency
     Dosage: LOADING DOSE: 3 MG/KG WEEKLY FOR 4 WEEKS FOLLOWED BY MAINTENANCE DOSES OF 1.5 MG/KG WEEKLY, 3 MG/KG
     Route: 058
  2. HEMLIBRA [Suspect]
     Active Substance: EMICIZUMAB-KXWH
     Dosage: LOADING DOSE: 3 MG/KG WEEKLY FOR 4 WEEKS FOLLOWED BY MAINTENANCE DOSES OF 1.5 MG/KG WEEKLY, 3 MG/KG
     Route: 058
  3. HEMLIBRA [Suspect]
     Active Substance: EMICIZUMAB-KXWH
     Dosage: LOADING DOSE: 3 MG/KG WEEKLY FOR 4 WEEKS FOLLOWED BY MAINTENANCE DOSES OF 1.5 MG/KG WEEKLY, 3 MG/KG
     Route: 058
  4. HEMLIBRA [Suspect]
     Active Substance: EMICIZUMAB-KXWH
     Dosage: LOADING DOSE: 3 MG/KG WEEKLY FOR 4 WEEKS FOLLOWED BY MAINTENANCE DOSES OF 1.5 MG/KG WEEKLY, 3 MG/KG
     Route: 058

REACTIONS (4)
  - Headache [Unknown]
  - Injection site reaction [Unknown]
  - Arthralgia [Unknown]
  - Haemorrhoids thrombosed [Unknown]
